FAERS Safety Report 19145941 (Version 22)
Quarter: 2022Q2

REPORT INFORMATION
  Report Type: Report from Study
  Country: GB (occurrence: GB)
  Receive Date: 20210416
  Receipt Date: 20220509
  Transmission Date: 20220720
  Serious: Yes (Other)
  Sender: FDA-Public Use
  Company Number: GB-ALEXION-A202013933

PATIENT
  Sex: Male

DRUGS (22)
  1. RAMIPRIL [Suspect]
     Active Substance: RAMIPRIL
     Indication: Hypertension
     Dosage: 5 MILLIGRAM
     Route: 065
     Dates: start: 202101
  2. RAMIPRIL [Suspect]
     Active Substance: RAMIPRIL
     Dosage: 2.5 MILLIGRAM
     Route: 065
  3. RAMIPRIL [Suspect]
     Active Substance: RAMIPRIL
     Dosage: 2.5 MILLIGRAM
     Route: 065
  4. RAMIPRIL [Suspect]
     Active Substance: RAMIPRIL
     Dosage: UNK
  5. SOLIRIS [Suspect]
     Active Substance: ECULIZUMAB
     Indication: Atypical haemolytic uraemic syndrome
     Dosage: UNK
     Route: 042
     Dates: start: 201703
  6. SOLIRIS [Suspect]
     Active Substance: ECULIZUMAB
     Dosage: 1200 MILLIGRAM, Q2W
     Route: 042
     Dates: start: 20190821
  7. PENICILLIN [Concomitant]
     Active Substance: PENICILLIN
     Indication: Prophylaxis
     Dosage: 500 MILLIGRAM, BID
     Route: 065
  8. PENICILLIN [Concomitant]
     Active Substance: PENICILLIN
     Dosage: UNK, BID
     Route: 065
  9. PENICILLIN [Concomitant]
     Active Substance: PENICILLIN
     Dosage: 500 MILLIGRAM, QD
     Route: 065
  10. PENICILLIN [Concomitant]
     Active Substance: PENICILLIN
     Dosage: 1000 MILLIGRAM, QD
     Route: 065
  11. PENICILLIN [Concomitant]
     Active Substance: PENICILLIN
     Dosage: UNK, QD (2 UNK, BID)
     Route: 065
  12. PENICILLIN [Concomitant]
     Active Substance: PENICILLIN
     Dosage: 1000 MILLIGRAM, QD (500 MG, BID)
     Route: 065
  13. PENICILLIN [Concomitant]
     Active Substance: PENICILLIN
     Dosage: 2 DOSAGE FORM, BID
     Route: 065
  14. PENICILLIN [Concomitant]
     Active Substance: PENICILLIN
     Dosage: 4 DOSAGE FORM, QD (4 DOSAGE FORM, ONCE A DAY)
     Route: 065
  15. PENICILLIN [Concomitant]
     Active Substance: PENICILLIN
     Dosage: 4 DOSAGE FORM, QD (4 DOSAGE FORM, QD (2 DF, BID))
     Route: 065
  16. PENICILLIN [Concomitant]
     Active Substance: PENICILLIN
     Dosage: 100 MILLIGRAM, QD (100 MILLIGRAM, ONCE A DAY)
     Route: 065
  17. PENICILLIN [Concomitant]
     Active Substance: PENICILLIN
     Dosage: 500 MILLIGRAM, QD (~500 MILLIGRAM, TWO TIMES A DAY)
     Route: 065
  18. CLEMIZOLE PENICILLIN [Concomitant]
     Active Substance: CLEMIZOLE PENICILLIN
     Indication: Prophylaxis
     Dosage: 2 DOSAGE FORM, QD
     Route: 065
  19. CLEMIZOLE PENICILLIN [Concomitant]
     Active Substance: CLEMIZOLE PENICILLIN
     Dosage: 100 MILLIGRAM, QD
     Route: 065
  20. CLEMIZOLE PENICILLIN [Concomitant]
     Active Substance: CLEMIZOLE PENICILLIN
     Dosage: 4 DOSAGE FORM, QD
     Route: 065
  21. CLEMIZOLE PENICILLIN [Concomitant]
     Active Substance: CLEMIZOLE PENICILLIN
     Dosage: 1000 MILLIGRAM, QD
     Route: 065
  22. CLEMIZOLE PENICILLIN [Concomitant]
     Active Substance: CLEMIZOLE PENICILLIN
     Dosage: 500 MILLIGRAM, QD (500 MILLIGRAM, ONCE A DAY)
     Route: 065

REACTIONS (7)
  - Blood pressure increased [Not Recovered/Not Resolved]
  - Hypertension [Recovering/Resolving]
  - Poor venous access [Unknown]
  - Renal impairment [Not Recovered/Not Resolved]
  - Cough [Recovering/Resolving]
  - Fatigue [Not Recovered/Not Resolved]
  - Product dose omission issue [Unknown]
